FAERS Safety Report 7231419-1 (Version None)
Quarter: 2011Q1

REPORT INFORMATION
  Report Type: 
  Country: None (occurrence: None)
  Receive Date: 20110118
  Receipt Date: 20110111
  Transmission Date: 20110831
  Serious: Yes (Hospitalization)
  Sender: FDA-Public Use
  Company Number: US-US-EMD SERONO, INC.-237560J08USA

PATIENT
  Sex: Female
  Weight: 57 kg

DRUGS (9)
  1. PRILOSEC [Concomitant]
     Indication: GASTROOESOPHAGEAL REFLUX DISEASE
  2. REBIF [Suspect]
     Indication: MULTIPLE SCLEROSIS
     Route: 058
     Dates: start: 20080604
  3. ALBUTEROL [Concomitant]
     Indication: ASTHMA
     Dates: start: 19930101
  4. TYLENOL [Concomitant]
     Indication: PREMEDICATION
  5. UNSPECIFIED MEDICATIONS [Concomitant]
  6. TYLENOL [Concomitant]
     Indication: DRUG THERAPY
  7. REGLAN [Concomitant]
     Indication: GASTROOESOPHAGEAL REFLUX DISEASE
     Dates: start: 20000101, end: 20080813
  8. QVAR 40 [Concomitant]
     Indication: ASTHMA
     Dates: start: 19930101
  9. NASAREL [Concomitant]
     Indication: HYPERSENSITIVITY

REACTIONS (9)
  - BALANCE DISORDER [None]
  - PAIN IN JAW [None]
  - LUMBAR VERTEBRAL FRACTURE [None]
  - DYSPHAGIA [None]
  - HEAD INJURY [None]
  - MULTIPLE SCLEROSIS RELAPSE [None]
  - PARKINSON'S DISEASE [None]
  - CONCUSSION [None]
  - FALL [None]
